FAERS Safety Report 14637581 (Version 1)
Quarter: 2018Q1

REPORT INFORMATION
  Report Type: Spontaneous
  Country: FR (occurrence: FR)
  Receive Date: 20180314
  Receipt Date: 20180314
  Transmission Date: 20180509
  Serious: Yes (Other)
  Sender: FDA-Public Use
  Company Number: FR-TEVA-2018-FR-866862

PATIENT
  Age: 89 Year
  Sex: Male
  Weight: 98 kg

DRUGS (16)
  1. IMOVANE [Concomitant]
     Active Substance: ZOPICLONE
  2. SPECIAFOLDINE [Concomitant]
     Active Substance: FOLIC ACID
  3. KARDEGIC [Concomitant]
     Active Substance: ASPIRIN DL-LYSINE
  4. CALCIPARINE [Concomitant]
     Active Substance: HEPARIN CALCIUM
  5. BISOPROLOL (HEMIFUMARATE DE) [Concomitant]
     Active Substance: BISOPROLOL FUMARATE
  6. CALCIDIA [Concomitant]
     Active Substance: CALCIUM POLYCARBOPHIL
  7. CANDESARTAN CILEXETIL. [Concomitant]
     Active Substance: CANDESARTAN CILEXETIL
  8. ARANESP [Concomitant]
     Active Substance: DARBEPOETIN ALFA
  9. UVEDOSE [Concomitant]
     Active Substance: CHOLECALCIFEROL
  10. PREDNISONE. [Suspect]
     Active Substance: PREDNISONE
     Indication: GRANULOMATOSIS WITH POLYANGIITIS
     Route: 048
  11. METHYLPREDNISOLONE MYLAN 500 MG, POWDER FOR SOLUTION FOR INJECTION [Suspect]
     Active Substance: METHYLPREDNISOLONE
     Indication: GRANULOMATOSIS WITH POLYANGIITIS
     Route: 042
  12. UMULINE RAPIDE 100 UI/ML, SOLUTION FOR INJECTION IN CARTRIDGE [Concomitant]
  13. LANTUS [Concomitant]
     Active Substance: INSULIN GLARGINE
  14. LASILIX [Concomitant]
     Active Substance: FUROSEMIDE
  15. EUPRESSYL [Concomitant]
     Active Substance: URAPIDIL
  16. AMOXICILLINE [Concomitant]
     Active Substance: AMOXICILLIN

REACTIONS (1)
  - Diabetes mellitus [Recovered/Resolved with Sequelae]
